FAERS Safety Report 5288017-9 (Version None)
Quarter: 2007Q2

REPORT INFORMATION
  Report Type: 
  Country: None (occurrence: None)
  Receive Date: 20070405
  Receipt Date: 20070323
  Transmission Date: 20071010
  Serious: Yes (Other)
  Sender: FDA-Public Use
  Company Number: PHNU2007DE00971

PATIENT
  Age: 53 Year
  Sex: Female
  Weight: 56 kg

DRUGS (1)
  1. VOLTAREN [Suspect]
     Indication: IRITIS
     Dosage: 4 DROPS DAILY
     Dates: start: 20070219, end: 20070222

REACTIONS (5)
  - HYPERSENSITIVITY [None]
  - NASAL DISORDER [None]
  - PHARYNGOLARYNGEAL PAIN [None]
  - THROAT TIGHTNESS [None]
  - URTICARIA [None]
